FAERS Safety Report 4434051-8 (Version None)
Quarter: 2004Q3

REPORT INFORMATION
  Report Type: 
  Country: None (occurrence: None)
  Receive Date: 20040825
  Receipt Date: 20040813
  Transmission Date: 20050211
  Serious: Yes (Hospitalization)
  Sender: FDA-Public Use
  Company Number: 208143

PATIENT
  Age: 41 Year
  Sex: Male

DRUGS (2)
  1. RAPTIVA [Suspect]
     Indication: PSORIASIS
     Dosage: 1.44 ML, 1/WEEK, SUBCUTANEOUS
     Route: 058
     Dates: start: 20040101
  2. FLEXERIL [Concomitant]

REACTIONS (3)
  - CD4 LYMPHOCYTES DECREASED [None]
  - HAEMOLYTIC ANAEMIA [None]
  - PROTEIN TOTAL INCREASED [None]
